FAERS Safety Report 4412983-4 (Version None)
Quarter: 2004Q3

REPORT INFORMATION
  Report Type: 
  Country: None (occurrence: None)
  Receive Date: 20040802
  Receipt Date: 20040211
  Transmission Date: 20050211
  Serious: No
  Sender: FDA-Public Use
  Company Number: US-GLAXOSMITHKLINE-A0497827A

PATIENT
  Age: 10 Month
  Sex: Male

DRUGS (3)
  1. ZANTAC [Suspect]
     Route: 048
     Dates: start: 20030601, end: 20040101
  2. VACCINATION [Concomitant]
  3. INFLUENZA VACCINE [Concomitant]

REACTIONS (3)
  - ANXIETY [None]
  - EMOTIONAL DISTRESS [None]
  - IRRITABILITY [None]
